FAERS Safety Report 9825013 (Version 1)
Quarter: 2013Q4

REPORT INFORMATION
  Report Type: Spontaneous
  Country: US (occurrence: None)
  Receive Date: 20131025
  Receipt Date: 20131025
  Transmission Date: 20140711
  Serious: Yes (Other)
  Sender: FDA-Public Use
  Company Number: AP356-00067-SPO-US

PATIENT
  Age: 40 Year
  Sex: Female

DRUGS (1)
  1. BELVIQ (LORCASERIN HYDROCHLORIDE) [Suspect]
     Indication: WEIGHT DECREASED
     Route: 048
     Dates: start: 20130813, end: 20130814

REACTIONS (5)
  - Peripheral coldness [None]
  - Hypoaesthesia [None]
  - Feeling drunk [None]
  - Local swelling [None]
  - Dizziness [None]
